FAERS Safety Report 6510281-6 (Version None)
Quarter: 2009Q4

REPORT INFORMATION
  Report Type: 
  Country: None (occurrence: None)
  Receive Date: 20091222
  Receipt Date: 20091002
  Transmission Date: 20100525
  Serious: No
  Sender: FDA-Public Use
  Company Number: US-ASTRAZENECA-2009SE17670

PATIENT
  Age: 516 Month
  Sex: Female

DRUGS (4)
  1. CRESTOR [Suspect]
     Indication: HIGH DENSITY LIPOPROTEIN INCREASED
     Route: 048
     Dates: start: 20090801, end: 20090901
  2. CRESTOR [Suspect]
     Route: 048
     Dates: start: 20090901
  3. SINGULAIR [Concomitant]
  4. ZYRTEC [Concomitant]

REACTIONS (1)
  - THROAT IRRITATION [None]
